FAERS Safety Report 11045438 (Version 1)
Quarter: 2015Q2

REPORT INFORMATION
  Report Type: Spontaneous
  Country: BR (occurrence: BR)
  Receive Date: 20150417
  Receipt Date: 20150417
  Transmission Date: 20150821
  Serious: Yes (Other)
  Sender: FDA-Public Use
  Company Number: BR-ELI_LILLY_AND_COMPANY-BR201504003293

PATIENT
  Sex: Female
  Weight: 63 kg

DRUGS (6)
  1. HUMULIN N [Suspect]
     Active Substance: INSULIN HUMAN
     Indication: DIABETES MELLITUS
     Dosage: 16 IU, QD
     Route: 058
     Dates: start: 2014
  2. HUMULIN N [Suspect]
     Active Substance: INSULIN HUMAN
     Dosage: 20 IU, EACH MORNING
     Route: 058
  3. HUMULIN N [Suspect]
     Active Substance: INSULIN HUMAN
     Dosage: 6 IU, OTHER
     Route: 058
  4. LOSARTANA POTASSICA [Concomitant]
     Active Substance: LOSARTAN
     Indication: HYPERTENSION
     Dosage: UNK, BID
     Route: 065
  5. HUMULIN N [Suspect]
     Active Substance: INSULIN HUMAN
     Dosage: 10 IU, EACH EVENING
     Route: 058
  6. METFORMIN [Concomitant]
     Active Substance: METFORMIN HYDROCHLORIDE
     Indication: DIABETES MELLITUS
     Dosage: 850 MG, BID
     Route: 065

REACTIONS (4)
  - Injection site pain [Not Recovered/Not Resolved]
  - Blood glucose increased [Not Recovered/Not Resolved]
  - Weight decreased [Recovering/Resolving]
  - Anaemia [Not Recovered/Not Resolved]

NARRATIVE: CASE EVENT DATE: 2014
